FAERS Safety Report 13928894 (Version 1)
Quarter: 2017Q3

REPORT INFORMATION
  Report Type: Report from Study
  Country: US (occurrence: US)
  Receive Date: 20170901
  Receipt Date: 20170901
  Transmission Date: 20171127
  Serious: Yes (Death, Hospitalization, Other)
  Sender: FDA-Public Use
  Company Number: US-PFIZER INC-2017265248

PATIENT
  Age: 54 Year
  Sex: Female
  Weight: 78.12 kg

DRUGS (23)
  1. LEVAQUIN [Concomitant]
     Active Substance: LEVOFLOXACIN
     Indication: PROPHYLAXIS
     Dosage: 500 MG, 1X/DAY
     Route: 048
     Dates: start: 20150730
  2. DIFLUCAN [Concomitant]
     Active Substance: FLUCONAZOLE
     Indication: PROPHYLAXIS
     Dosage: 200 MG, 1X/DAY
     Route: 048
     Dates: start: 20150730
  3. ESZOPICLONE. [Concomitant]
     Active Substance: ESZOPICLONE
     Indication: CARDIAC FAILURE
     Dosage: 2.5 MG, 1X/DAY
     Route: 048
     Dates: start: 20150827
  4. INOTUZUMAB OZOGAMICIN [Suspect]
     Active Substance: INOTUZUMAB OZOGAMICIN
     Indication: B-CELL TYPE ACUTE LEUKAEMIA
     Dosage: 0.8 MG/M2, CYCLIC (DAY 1, DAYS 8, 15)
     Route: 042
     Dates: start: 20170512
  5. AUGMENTIN [Suspect]
     Active Substance: AMOXICILLIN\CLAVULANATE POTASSIUM
     Indication: STOMATITIS
     Dosage: 875 MG/125 MG, 1 TABLET 2 TIMES DAILY FOR 14 DAYS
     Route: 048
     Dates: start: 20170530
  6. XANAX [Concomitant]
     Active Substance: ALPRAZOLAM
     Indication: ANXIETY
     Dosage: 0.5 MG, 1 TABLET, 3X/DAY, AS NEEDED
     Route: 048
     Dates: start: 20151013
  7. XANAX [Concomitant]
     Active Substance: ALPRAZOLAM
     Indication: SLEEP DISORDER
  8. LUNESTA [Concomitant]
     Active Substance: ESZOPICLONE
     Indication: INSOMNIA
     Dosage: 1 MG, 1 TABLET, 1X NIGHTLY
     Route: 048
     Dates: start: 20170207
  9. ZESTRIL [Concomitant]
     Active Substance: LISINOPRIL
     Indication: CORONARY ARTERY DISEASE
  10. ZESTRIL [Concomitant]
     Active Substance: LISINOPRIL
     Indication: ATRIAL FIBRILLATION
  11. ZOFRAN [Concomitant]
     Active Substance: ONDANSETRON HYDROCHLORIDE
     Indication: NAUSEA
     Dosage: 8 MG, 1 TABLET, 1 X EVERY 8 HRS AS NEEDED
     Route: 048
     Dates: start: 20150709
  12. ZOVIRAX [Concomitant]
     Active Substance: ACYCLOVIR
     Indication: NEUTROPENIA
     Dosage: 400 MG, 2X/DAY
     Route: 048
     Dates: start: 20150730
  13. ZOFRAN [Concomitant]
     Active Substance: ONDANSETRON HYDROCHLORIDE
     Indication: VOMITING
  14. ZESTRIL [Concomitant]
     Active Substance: LISINOPRIL
     Indication: CARDIAC FAILURE
     Dosage: 2.5 MG, 1 TABLET, 1X/DAILY
     Route: 048
     Dates: start: 20110915, end: 20170414
  15. CYMBALTA [Concomitant]
     Active Substance: DULOXETINE HYDROCHLORIDE
     Indication: ANTIDEPRESSANT THERAPY
     Dosage: 90 MG (TAKE 1 30MG CAPSULE AND 1 60MG CAPSULE), DAILY
     Route: 048
     Dates: start: 20150915, end: 20160915
  16. DIFLUCAN [Concomitant]
     Active Substance: FLUCONAZOLE
     Indication: ANTI-INFECTIVE THERAPY
  17. ZYLOPRIM [Concomitant]
     Active Substance: ALLOPURINOL
     Indication: BLOOD URIC ACID DECREASED
     Dosage: 300 MG, 1X/DAY
     Route: 048
     Dates: start: 20170414
  18. LEVAQUIN [Concomitant]
     Active Substance: LEVOFLOXACIN
     Indication: ANTI-INFECTIVE THERAPY
  19. ACZONE [Concomitant]
     Active Substance: DAPSONE
     Indication: ANTIBIOTIC PROPHYLAXIS
     Dosage: 100 MG 1 TABLET, 1X NIGHTLY
     Route: 048
     Dates: start: 20151215
  20. PRILOSEC [Concomitant]
     Active Substance: OMEPRAZOLE MAGNESIUM
     Indication: GASTROOESOPHAGEAL REFLUX DISEASE
     Dosage: 20 MG, 1X/DAY
     Route: 048
     Dates: start: 20160510
  21. ULTRAM [Concomitant]
     Active Substance: TRAMADOL HYDROCHLORIDE
     Indication: PAIN
     Dosage: 50 MG, AS NEEDED EVERY 4 HRS
     Route: 048
     Dates: start: 20150709
  22. ZESTRIL [Concomitant]
     Active Substance: LISINOPRIL
     Indication: MITRAL VALVE REPLACEMENT
  23. MUCOSITIS MOUTHWASH [Concomitant]
     Indication: STOMATITIS
     Dosage: 30 ML, 4X/DAY
     Route: 048
     Dates: start: 20160510

REACTIONS (47)
  - Pain [Recovered/Resolved with Sequelae]
  - Haematuria [Recovered/Resolved with Sequelae]
  - Stomatitis [Recovered/Resolved]
  - Hypophosphataemia [Recovered/Resolved with Sequelae]
  - Hyperkalaemia [Recovered/Resolved]
  - Blood bilirubin increased [Recovered/Resolved with Sequelae]
  - Pyrexia [Recovered/Resolved with Sequelae]
  - Fatigue [Not Recovered/Not Resolved]
  - Hypoalbuminaemia [Recovered/Resolved]
  - Herpes simplex [Recovered/Resolved with Sequelae]
  - Neoplasm progression [Fatal]
  - Hypokalaemia [Recovered/Resolved]
  - Aspartate aminotransferase increased [Recovered/Resolved]
  - Chills [Recovered/Resolved]
  - Oedema peripheral [Not Recovered/Not Resolved]
  - Dermatitis contact [Recovered/Resolved]
  - Asthenia [Recovered/Resolved with Sequelae]
  - Dysarthria [Recovered/Resolved with Sequelae]
  - Headache [Recovered/Resolved with Sequelae]
  - Anaemia [Recovered/Resolved]
  - Hallucination [Recovered/Resolved with Sequelae]
  - Dyspnoea exertional [Recovered/Resolved]
  - Anxiety [Not Recovered/Not Resolved]
  - Dizziness [Recovered/Resolved with Sequelae]
  - Decreased appetite [Not Recovered/Not Resolved]
  - Hyponatraemia [Unknown]
  - White blood cell count decreased [Recovered/Resolved]
  - Hypoalbuminaemia [Recovered/Resolved with Sequelae]
  - Hypoaesthesia [Not Recovered/Not Resolved]
  - Agitation [Recovered/Resolved with Sequelae]
  - Hypoxia [Not Recovered/Not Resolved]
  - White blood cell count decreased [Recovered/Resolved with Sequelae]
  - Blood alkaline phosphatase increased [Recovered/Resolved]
  - Stomatitis [Recovered/Resolved with Sequelae]
  - Loss of consciousness [Recovered/Resolved with Sequelae]
  - Lymphocyte count decreased [Recovered/Resolved]
  - Lymphocyte count increased [Recovered/Resolved with Sequelae]
  - Contusion [Recovered/Resolved with Sequelae]
  - Aspartate aminotransferase increased [Recovered/Resolved with Sequelae]
  - Fall [Recovered/Resolved with Sequelae]
  - Confusional state [Recovered/Resolved with Sequelae]
  - Amnesia [Recovered/Resolved with Sequelae]
  - Constipation [Not Recovered/Not Resolved]
  - Diarrhoea [Recovered/Resolved]
  - Agitation [Not Recovered/Not Resolved]
  - Hyperglycaemia [Recovered/Resolved]
  - Lethargy [Recovered/Resolved with Sequelae]

NARRATIVE: CASE EVENT DATE: 20170515
